FAERS Safety Report 8683375 (Version 2)
Quarter: 2012Q4

REPORT INFORMATION
  Report Type: 
  Country: US (occurrence: US)
  Receive Date: 20120726
  Receipt Date: 20120917
  Transmission Date: 20130627
  Serious: No
  Sender: FDA-Public Use
  Company Number: US-B.I. PHARMACEUTICALS,INC./RIDGEFIELD-2012-BP-16040BP

PATIENT
  Age: 81 Year
  Sex: Male

DRUGS (10)
  1. SPIRIVA [Suspect]
     Indication: PULMONARY FIBROSIS
     Dosage: 18 mcg
     Route: 055
     Dates: start: 201204, end: 201207
  2. SPIRIVA [Suspect]
     Dosage: 18 mcg
     Route: 055
     Dates: start: 201207
  3. SPIRIVA [Suspect]
     Dosage: 18 mcg
     Route: 055
  4. PREDNISONE [Concomitant]
     Indication: PULMONARY FIBROSIS
     Dosage: 10 mg
     Route: 048
  5. VERAPAMIL [Concomitant]
     Indication: HYPERTENSION
     Dosage: 180 mg
     Route: 048
  6. TRANDOLAPRIL [Concomitant]
     Indication: HYPERTENSION
     Dosage: 2 mg
     Route: 048
  7. PLAVIX [Concomitant]
     Indication: CORONARY ARTERY DISEASE
     Dosage: 75 mg
     Route: 048
  8. SIMVASTATIN [Concomitant]
     Indication: BLOOD CHOLESTEROL INCREASED
     Dosage: 40 mg
     Route: 048
  9. AVODART [Concomitant]
  10. NAC [Concomitant]
     Indication: PULMONARY FIBROSIS
     Dosage: 1200 mg
     Route: 048

REACTIONS (2)
  - Dry mouth [Not Recovered/Not Resolved]
  - Dysgeusia [Not Recovered/Not Resolved]
